FAERS Safety Report 10003600 (Version 2)
Quarter: 2014Q1

REPORT INFORMATION
  Report Type: Spontaneous
  Country: US (occurrence: US)
  Receive Date: 20140312
  Receipt Date: 20140312
  Transmission Date: 20141002
  Serious: No
  Sender: FDA-Public Use
  Company Number: US-INCYTE CORPORATION-2013IN000754

PATIENT
  Sex: Female

DRUGS (3)
  1. JAKAFI [Suspect]
     Indication: MYELOFIBROSIS
     Dosage: 30 MG, QD
     Route: 048
     Dates: start: 201301
  2. JAKAFI [Suspect]
     Indication: MYELOFIBROSIS
     Dosage: 20 MG, BID
     Route: 065
     Dates: start: 20130308
  3. HYDROXYUREA [Concomitant]

REACTIONS (6)
  - Increased appetite [Unknown]
  - Inappropriate schedule of drug administration [Unknown]
  - Alopecia [Unknown]
  - Abdominal distension [Unknown]
  - Headache [Recovered/Resolved]
  - Weight increased [Unknown]
